FAERS Safety Report 13613378 (Version 5)
Quarter: 2017Q4

REPORT INFORMATION
  Report Type: Spontaneous
  Country: US (occurrence: US)
  Receive Date: 20170605
  Receipt Date: 20171002
  Transmission Date: 20180320
  Serious: Yes (Hospitalization)
  Sender: FDA-Public Use
  Company Number: US-ACTELION-A-US2017-154742

PATIENT
  Age: 40 Year
  Sex: Female

DRUGS (10)
  1. TYVASO [Suspect]
     Active Substance: TREPROSTINIL
     Dosage: UNK
     Route: 055
     Dates: end: 201707
  2. TRACLEER [Suspect]
     Active Substance: BOSENTAN
     Indication: PULMONARY ARTERIAL HYPERTENSION
     Dosage: 125 MG, BID
     Route: 048
     Dates: start: 20120709
  3. ALLOPURINOL. [Concomitant]
     Active Substance: ALLOPURINOL
  4. POTASSIUM [Concomitant]
     Active Substance: POTASSIUM
  5. TORSEMIDE. [Concomitant]
     Active Substance: TORSEMIDE
  6. NEXIUM [Concomitant]
     Active Substance: ESOMEPRAZOLE MAGNESIUM
  7. SPIRONOLACTONE. [Concomitant]
     Active Substance: SPIRONOLACTONE
  8. DIGOXIN. [Concomitant]
     Active Substance: DIGOXIN
  9. TYVASO [Suspect]
     Active Substance: TREPROSTINIL
     Indication: PRODUCT USED FOR UNKNOWN INDICATION
     Dosage: 12 BREATHS, QID
     Route: 055
     Dates: start: 201707
  10. METOLAZONE. [Concomitant]
     Active Substance: METOLAZONE

REACTIONS (8)
  - Blood iron decreased [Unknown]
  - Weight increased [Unknown]
  - Dyspnoea [Unknown]
  - Localised oedema [Unknown]
  - Dizziness [Unknown]
  - Fluid retention [Unknown]
  - Blood creatinine increased [Unknown]
  - Oedema peripheral [Unknown]

NARRATIVE: CASE EVENT DATE: 20170524
